FAERS Safety Report 9894278 (Version 2)
Quarter: 2014Q3

REPORT INFORMATION
  Report Type: Spontaneous
  Country: US (occurrence: US)
  Receive Date: 20140213
  Receipt Date: 20140815
  Transmission Date: 20150326
  Serious: Yes (Hospitalization, Other)
  Sender: FDA-Public Use
  Company Number: US-009507513-1402USA005906

PATIENT
  Sex: Female
  Weight: 68.27 kg

DRUGS (1)
  1. NUVARING [Suspect]
     Active Substance: ETHINYL ESTRADIOL\ETONOGESTREL
     Indication: CONTRACEPTION
     Dosage: 0.12-0.015 MG INSERT 1 RING LEAVE IN PLACE 21 DAYS REMOVE FOR 7 DAYS, Q3W
     Route: 067
     Dates: start: 20121214, end: 20130813

REACTIONS (5)
  - Pulmonary embolism [Unknown]
  - Urinary tract infection [Unknown]
  - Herpes virus infection [Unknown]
  - Nausea [Unknown]
  - Anxiety [Unknown]

NARRATIVE: CASE EVENT DATE: 20130812
